FAERS Safety Report 7056375-0 (Version None)
Quarter: 2010Q4

REPORT INFORMATION
  Report Type: 
  Country: None (occurrence: None)
  Receive Date: 20101021
  Receipt Date: 20100625
  Transmission Date: 20110411
  Serious: Yes (Hospitalization)
  Sender: FDA-Public Use
  Company Number: PHHO2009JP00558

PATIENT
  Sex: Female
  Weight: 49 kg

DRUGS (7)
  1. AFINITOR [Suspect]
     Indication: PANCREATIC NEUROENDOCRINE TUMOUR
     Dosage: 10 MG DAILY
     Route: 048
     Dates: start: 20081216, end: 20081225
  2. AFINITOR [Suspect]
     Dosage: NO TREATMENT
     Dates: start: 20081226, end: 20090105
  3. AFINITOR [Suspect]
     Dosage: REDUCED DOSAGE
     Route: 048
     Dates: start: 20090106
  4. DOGMATYL [Concomitant]
     Indication: PANIC DISORDER
  5. WYPAX [Concomitant]
     Indication: PANIC DISORDER
  6. CONSTAN [Concomitant]
     Indication: PANIC DISORDER
  7. MYSLEE [Concomitant]
     Indication: INSOMNIA

REACTIONS (6)
  - DIFFERENTIAL WHITE BLOOD CELL COUNT ABNORMAL [None]
  - ERYTHROBLAST COUNT DECREASED [None]
  - HAEMOGLOBIN DECREASED [None]
  - LYMPHOCYTE MORPHOLOGY ABNORMAL [None]
  - NEUTROPENIA [None]
  - NEUTROPHIL COUNT DECREASED [None]
